FAERS Safety Report 20908928 (Version 2)
Quarter: 2022Q2

REPORT INFORMATION
  Report Type: Report from Study
  Country: BE (occurrence: None)
  Receive Date: 20220603
  Receipt Date: 20220609
  Transmission Date: 20220721
  Serious: Yes (Hospitalization)
  Sender: FDA-Public Use
  Company Number: BE-ROCHE-3108218

PATIENT
  Age: 62 Year
  Sex: Male
  Weight: 40 kg

DRUGS (4)
  1. TIRAGOLUMAB [Suspect]
     Active Substance: TIRAGOLUMAB
     Indication: Non-small cell lung cancer stage III
     Dosage: START DATE OF MOST RECENT DOSE OF STUDY DRUG PRIOR TO SAE 20/APR/2022?DOSE LAST STUDY DRUG ADMIN PRI
     Route: 042
     Dates: start: 20210804
  2. ATEZOLIZUMAB [Suspect]
     Active Substance: ATEZOLIZUMAB
     Indication: Non-small cell lung cancer stage III
     Dosage: DOSE LAST STUDY DRUG ADMIN PRIOR SAE 1680 MG?START DATE OF MOST RECENT DOSE OF STUDY DRUG PRIOR TO S
     Route: 041
     Dates: start: 20210804
  3. COVERAM [Concomitant]
     Active Substance: AMLODIPINE\PERINDOPRIL
     Indication: Hypertension
     Route: 048
     Dates: start: 20171215
  4. BECLOMETHASONE DIPROPIONATE\FORMOTEROL FUMARATE\GLYCOPYRROLATE [Concomitant]
     Active Substance: BECLOMETHASONE DIPROPIONATE\FORMOTEROL FUMARATE\GLYCOPYRROLATE
     Indication: Chronic obstructive pulmonary disease
     Dosage: DOSE: 2PUFF
     Route: 055
     Dates: start: 20210322

REACTIONS (1)
  - Acute kidney injury [Not Recovered/Not Resolved]

NARRATIVE: CASE EVENT DATE: 20220527
